FAERS Safety Report 5950692-0 (Version None)
Quarter: 2008Q4

REPORT INFORMATION
  Report Type: 
  Country: None (occurrence: None)
  Receive Date: 20081112
  Receipt Date: 20081103
  Transmission Date: 20090506
  Serious: Yes (Other)
  Sender: FDA-Public Use
  Company Number: US-PURDUE-USA_2008_0035748

PATIENT
  Sex: Female

DRUGS (8)
  1. OXYCONTIN [Suspect]
     Indication: DRUG USE FOR UNKNOWN INDICATION
  2. NEURONTIN [Suspect]
     Indication: FIBROMYALGIA
  3. ZOLOFT [Suspect]
     Indication: DRUG USE FOR UNKNOWN INDICATION
  4. SOMA [Suspect]
     Indication: DRUG USE FOR UNKNOWN INDICATION
  5. BENTYL [Suspect]
     Indication: DRUG USE FOR UNKNOWN INDICATION
  6. ASACOL [Suspect]
     Indication: DRUG USE FOR UNKNOWN INDICATION
  7. CELEXA [Concomitant]
  8. LEXAPRO [Concomitant]

REACTIONS (3)
  - FEELING ABNORMAL [None]
  - OVERDOSE [None]
  - SUICIDAL IDEATION [None]
